FAERS Safety Report 14757625 (Version 1)
Quarter: 2018Q2

REPORT INFORMATION
  Report Type: Spontaneous
  Country: GB (occurrence: GB)
  Receive Date: 20180413
  Receipt Date: 20180413
  Transmission Date: 20180711
  Serious: Yes (Hospitalization)
  Sender: FDA-Public Use
  Company Number: GB-TEVA-2018-GB-881860

PATIENT
  Age: 16 Year
  Sex: Female
  Weight: 103 kg

DRUGS (1)
  1. ENALAPRIL [Suspect]
     Active Substance: ENALAPRIL
     Dosage: 10 MILLIGRAM DAILY;
     Route: 048
     Dates: end: 20180213

REACTIONS (2)
  - Acute kidney injury [Unknown]
  - Nephropathy toxic [Unknown]
